FAERS Safety Report 24772816 (Version 1)
Quarter: 2024Q4

REPORT INFORMATION
  Report Type: Report from Study
  Country: US (occurrence: US)
  Receive Date: 20241225
  Receipt Date: 20241225
  Transmission Date: 20250114
  Serious: Yes (Hospitalization, Other)
  Sender: ABBVIE
  Company Number: US-ABBVIE-5941734

PATIENT
  Age: 71 Year
  Sex: Female
  Weight: 131.08 kg

DRUGS (2)
  1. HUMIRA [Suspect]
     Active Substance: ADALIMUMAB
     Indication: Arthritis
     Route: 058
     Dates: start: 20220706, end: 202408
  2. FOLIC ACID [Concomitant]
     Active Substance: FOLIC ACID
     Indication: Product used for unknown indication

REACTIONS (4)
  - Skin reaction [Recovering/Resolving]
  - Cellulitis [Recovered/Resolved]
  - Sepsis [Recovering/Resolving]
  - Blister infected [Recovering/Resolving]

NARRATIVE: CASE EVENT DATE: 20240801
